FAERS Safety Report 7824674-8 (Version None)
Quarter: 2011Q4

REPORT INFORMATION
  Report Type: 
  Country: None (occurrence: None)
  Receive Date: 20111019
  Receipt Date: 20111007
  Transmission Date: 20120403
  Serious: Yes (Other)
  Sender: FDA-Public Use
  Company Number: PHHY2011AR89746

PATIENT
  Sex: Female

DRUGS (3)
  1. COLMIBE [Concomitant]
  2. CONCOR [Concomitant]
     Dosage: 10 MG, UNK
  3. DIOVAN [Suspect]
     Indication: HYPERTENSION
     Dosage: 80 MG, DAILY
     Dates: start: 20110601

REACTIONS (3)
  - PNEUMONITIS [None]
  - BRONCHITIS [None]
  - MALAISE [None]
